FAERS Safety Report 7890158-4 (Version None)
Quarter: 2011Q4

REPORT INFORMATION
  Report Type: 
  Country: None (occurrence: None)
  Receive Date: 20111103
  Receipt Date: 20110502
  Transmission Date: 20120403
  Serious: Yes (Death)
  Sender: FDA-Public Use
  Company Number: US-ASTRAZENECA-1996UW13002

PATIENT
  Age: 7 Year
  Sex: Male
  Weight: 27.7 kg

DRUGS (5)
  1. PHENOBARBITAL TAB [Concomitant]
     Indication: UNEVALUABLE EVENT
     Dosage: NA
     Dates: start: 19960507
  2. CLONAZEPAM [Concomitant]
     Indication: UNEVALUABLE EVENT
     Dosage: NA
     Dates: start: 19960507
  3. CARBAMAZEPINE [Concomitant]
     Indication: UNEVALUABLE EVENT
     Dosage: NA
     Dates: start: 19960507
  4. HYDROCORTISONE [Concomitant]
     Indication: UNEVALUABLE EVENT
     Dosage: NA
     Dates: start: 19960507
  5. DIPRIVAN [Suspect]
     Indication: STATUS EPILEPTICUS
     Dosage: APPROX 3 DAYS, MEAN DOSE 19
     Route: 042
     Dates: start: 19960515, end: 19960518

REACTIONS (1)
  - PROPOFOL INFUSION SYNDROME [None]
